FAERS Safety Report 14935464 (Version 1)
Quarter: 2018Q2

REPORT INFORMATION
  Report Type: Spontaneous
  Country: US (occurrence: US)
  Receive Date: 20180507
  Receipt Date: 20180507
  Transmission Date: 20180711
  Serious: No
  Sender: FDA-Public Use
  Company Number: None

PATIENT

DRUGS (2)
  1. TESTIM [Suspect]
     Active Substance: TESTOSTERONE
  2. ANDRODERM [Suspect]
     Active Substance: TESTOSTERONE

REACTIONS (3)
  - Malabsorption [None]
  - Treatment failure [None]
  - Asthenia [None]
